FAERS Safety Report 8520809 (Version 2)
Quarter: 2012Q4

REPORT INFORMATION
  Report Type: 
  Country: US (occurrence: US)
  Receive Date: 20120419
  Receipt Date: 20121120
  Transmission Date: 20130627
  Serious: No
  Sender: FDA-Public Use
  Company Number: US-ASTRAZENECA-2011SE14904

PATIENT
  Age: 62 Year
  Sex: Female
  Weight: 59 kg

DRUGS (4)
  1. NEXIUM [Suspect]
     Indication: GASTROOESOPHAGEAL REFLUX DISEASE
     Route: 048
     Dates: start: 2009
  2. NEXIUM [Suspect]
     Indication: GASTROOESOPHAGEAL REFLUX DISEASE
     Dosage: EVERY OTHER DAY
     Route: 048
  3. PRILOSEC OTC [Suspect]
     Route: 048
  4. DIABETIC MEDICATION [Concomitant]

REACTIONS (11)
  - Dyspepsia [Unknown]
  - Hypertension [Unknown]
  - Polyarthritis [Unknown]
  - Intervertebral disc protrusion [Unknown]
  - Migraine [Unknown]
  - Gastric disorder [Unknown]
  - Haematemesis [Unknown]
  - Dyspepsia [Unknown]
  - Drug ineffective [Unknown]
  - Inappropriate schedule of drug administration [Unknown]
  - Drug dose omission [Unknown]
